FAERS Safety Report 5930013-X (Version None)
Quarter: 2008Q4

REPORT INFORMATION
  Report Type: 
  Country: None (occurrence: None)
  Receive Date: 20081024
  Receipt Date: 20081013
  Transmission Date: 20090506
  Serious: Yes (Other)
  Sender: FDA-Public Use
  Company Number: CH-PFIZER INC-2008085618

PATIENT
  Sex: Female

DRUGS (10)
  1. DIFLUCAN [Suspect]
     Route: 048
     Dates: start: 20080826, end: 20080910
  2. PREDNISONE TAB [Suspect]
     Indication: TEMPORAL ARTERITIS
     Dates: start: 20060101
  3. SOLU-CORTEF [Concomitant]
     Dosage: DAILY DOSE:100MG
     Route: 042
     Dates: start: 20080822, end: 20080822
  4. NEXIUM [Concomitant]
     Dates: start: 20080805
  5. CLEXANE [Concomitant]
     Dates: start: 20080823
  6. CEFTRIAXONE [Concomitant]
     Indication: SEPSIS
     Dosage: DAILY DOSE:1GRAM
     Route: 042
     Dates: start: 20080824, end: 20080831
  7. TAZOBACTAM [Concomitant]
     Indication: SEPSIS
     Dosage: DAILY DOSE:4.5MG
     Route: 042
     Dates: start: 20080822, end: 20080824
  8. AUGMENTIN '125' [Concomitant]
     Indication: DERMO-HYPODERMITIS
     Dosage: DAILY DOSE:625MG
     Route: 048
     Dates: start: 20080804, end: 20080818
  9. PAROXETINE HCL [Concomitant]
     Dates: start: 20080101
  10. GLUCOSE [Concomitant]
     Route: 042
     Dates: start: 20080822, end: 20080903

REACTIONS (2)
  - ADRENAL INSUFFICIENCY [None]
  - HYPOGLYCAEMIA [None]
